FAERS Safety Report 26019739 (Version 1)
Quarter: 2025Q4

REPORT INFORMATION
  Report Type: Spontaneous
  Country: GB (occurrence: GB)
  Receive Date: 20251110
  Receipt Date: 20251110
  Transmission Date: 20260117
  Serious: Yes (Life-Threatening, Other)
  Sender: PFIZER
  Company Number: None

PATIENT
  Age: 30 Year
  Sex: Female
  Weight: 60 kg

DRUGS (2)
  1. SPIRONOLACTONE [Suspect]
     Active Substance: SPIRONOLACTONE
     Indication: Acne
     Dosage: 25 MG, 1X/DAY
     Dates: start: 20250719, end: 20251031
  2. MIRENA [Concomitant]
     Active Substance: LEVONORGESTREL
     Indication: Adverse drug reaction
     Dosage: UNK
     Dates: start: 20241201

REACTIONS (7)
  - Product label confusion [Unknown]
  - Product prescribing issue [Unknown]
  - Suicidal ideation [Recovered/Resolved]
  - Depression [Unknown]
  - Emotional disorder [Unknown]
  - Panic attack [Unknown]
  - Off label use [Unknown]

NARRATIVE: CASE EVENT DATE: 20250815
